FAERS Safety Report 19903737 (Version 1)
Quarter: 2021Q4

REPORT INFORMATION
  Report Type: Spontaneous
  Country: FR (occurrence: FR)
  Receive Date: 20211001
  Receipt Date: 20211001
  Transmission Date: 20220303
  Serious: Yes (Other)
  Sender: FDA-Public Use
  Company Number: None

PATIENT
  Age: 89 Year
  Sex: Female
  Weight: 49.4 kg

DRUGS (6)
  1. KEPPRA [Suspect]
     Active Substance: LEVETIRACETAM
     Indication: Epilepsy
     Dosage: COMPRIME PELLICULE
     Route: 048
     Dates: start: 20210811, end: 20210813
  2. KEPPRA [Suspect]
     Active Substance: LEVETIRACETAM
     Dosage: SOLUTION A DILUER POUR PERFUSION (100 MG/ML)
     Route: 042
     Dates: start: 20210811, end: 20210811
  3. RIVOTRIL [Suspect]
     Active Substance: CLONAZEPAM
     Indication: Epilepsy
     Dosage: SOLUTIONS A DILUER INJECTABLES EN AMPOULES
     Route: 042
     Dates: start: 20210811, end: 20210811
  4. FLAGYL [Suspect]
     Active Substance: METRONIDAZOLE\METRONIDAZOLE HYDROCHLORIDE
     Indication: Lung disorder
     Dosage: 0.5 POUR CENT, SOLUTION INJECTABLE
     Route: 042
     Dates: start: 20210811, end: 20210815
  5. CALCIPARINE [Suspect]
     Active Substance: HEPARIN CALCIUM
     Indication: Thrombosis prophylaxis
     Dosage: 6250 TROIS FOIS PAR JOUR
     Route: 058
     Dates: start: 20210811, end: 20210815
  6. CEFTRIAXONE [Concomitant]
     Active Substance: CEFTRIAXONE
     Indication: Lung disorder
     Route: 042
     Dates: start: 20210811, end: 20210817

REACTIONS (1)
  - Neutropenia [Recovering/Resolving]

NARRATIVE: CASE EVENT DATE: 20210813
